FAERS Safety Report 8932261 (Version 1)
Quarter: 2012Q4

REPORT INFORMATION
  Report Type: 
  Country: US (occurrence: US)
  Receive Date: 20121128
  Receipt Date: 20121128
  Transmission Date: 20130627
  Serious: No
  Sender: FDA-Public Use
  Company Number: US-BAYER-2012-124336

PATIENT
  Age: 70 Year
  Sex: Female
  Weight: 64.4 kg

DRUGS (2)
  1. ALEVE CAPLET/TABLET,MIDOL EXTENDED RELIEF CAPLET [Suspect]
     Indication: MUSCLE STRAIN
     Dosage: 1 DF, QD
     Route: 048
     Dates: start: 20121117
  2. BAYER ASPIRIN REGIMEN ADULT LOW STRENGTH [Concomitant]
     Dosage: UNK

REACTIONS (1)
  - Drug ineffective [None]
